FAERS Safety Report 7331130-2 (Version None)
Quarter: 2011Q1

REPORT INFORMATION
  Report Type: 
  Country: None (occurrence: None)
  Receive Date: 20110304
  Receipt Date: 20110218
  Transmission Date: 20110831
  Serious: Yes (Hospitalization)
  Sender: FDA-Public Use
  Company Number: GB-RANBAXY-2010R1-40219

PATIENT
  Age: 15 Year
  Sex: Male

DRUGS (6)
  1. METHYLPHENIDATE [Suspect]
     Indication: ILL-DEFINED DISORDER
     Dosage: 80 MG, UNK
     Route: 048
  2. AMPHETAMINE [Suspect]
     Indication: ILL-DEFINED DISORDER
     Dosage: UNK
     Route: 048
  3. SERTRALINE [Suspect]
     Indication: ILL-DEFINED DISORDER
     Dosage: UNK
     Route: 048
  4. MELATONIN [Suspect]
     Indication: ILL-DEFINED DISORDER
     Dosage: UNK
     Route: 048
  5. PARACETAMOL [Suspect]
     Indication: ILL-DEFINED DISORDER
     Dosage: UNK
     Route: 048
  6. ASPIRIN [Suspect]
     Indication: ILL-DEFINED DISORDER
     Dosage: UNK
     Route: 048

REACTIONS (1)
  - MULTIPLE DRUG OVERDOSE [None]
